FAERS Safety Report 18143049 (Version 2)
Quarter: 2021Q1

REPORT INFORMATION
  Report Type: Spontaneous
  Country: US (occurrence: US)
  Receive Date: 20200812
  Receipt Date: 20210128
  Transmission Date: 20210419
  Serious: Yes (Disabling, Other)
  Sender: FDA-Public Use
  Company Number: US-PURDUE-USA-2020-0160282

PATIENT
  Sex: Female

DRUGS (9)
  1. OXYCONTIN [Suspect]
     Active Substance: OXYCODONE HYDROCHLORIDE
     Indication: MUSCULOSKELETAL DISCOMFORT
     Dosage: UNK
     Route: 048
  2. DILANTIN [Suspect]
     Active Substance: PHENYTOIN
     Indication: MUSCULOSKELETAL DISCOMFORT
     Dosage: UNK
     Route: 065
  3. HYDROCODONE BITARTRATE (SIMILAR TO NDA 206627) [Suspect]
     Active Substance: HYDROCODONE BITARTRATE
     Indication: MUSCULOSKELETAL DISCOMFORT
     Dosage: UNK
     Route: 048
  4. DILAUDID [Suspect]
     Active Substance: HYDROMORPHONE HYDROCHLORIDE
     Indication: NECK PAIN
     Dosage: UNKNOWN
     Route: 048
  5. FENTANYL. [Suspect]
     Active Substance: FENTANYL
     Indication: NECK PAIN
     Dosage: UNKNOWN
     Route: 062
  6. OXYCODONE HCL CR TABLETS (SIMILAR TO NDA 22?272) [Suspect]
     Active Substance: OXYCODONE HYDROCHLORIDE
     Indication: NECK PAIN
     Dosage: UNKNOWN
     Route: 048
  7. OXYCODONE HCL TABLETS (RHODES 91?490) [Suspect]
     Active Substance: OXYCODONE HYDROCHLORIDE
     Indication: NECK PAIN
     Dosage: UNKNOWN
     Route: 048
  8. OXYCODONE/ ACETAMINOPHEN TABLETS [Suspect]
     Active Substance: ACETAMINOPHEN\OXYCODONE HYDROCHLORIDE
     Indication: NECK PAIN
     Dosage: UNKNOWN
     Route: 048
  9. TRAMADOL. [Suspect]
     Active Substance: TRAMADOL
     Indication: NECK PAIN
     Dosage: UNKNOWN
     Route: 065

REACTIONS (9)
  - Drug dependence [Unknown]
  - Post-traumatic stress disorder [Unknown]
  - Suicide attempt [Unknown]
  - Overdose [Unknown]
  - Cardiac valve disease [Unknown]
  - Unevaluable event [Unknown]
  - Cardiac disorder [Unknown]
  - Sepsis [Unknown]
  - Imprisonment [Not Recovered/Not Resolved]
